FAERS Safety Report 4935459-4 (Version None)
Quarter: 2006Q1

REPORT INFORMATION
  Report Type: 
  Country: None (occurrence: None)
  Receive Date: 20060307
  Receipt Date: 20060304
  Transmission Date: 20060701
  Serious: Yes (Other)
  Sender: FDA-Public Use
  Company Number: GB-GLAXOSMITHKLINE-B0414386A

PATIENT
  Age: 65 Year
  Sex: Male

DRUGS (9)
  1. ACYCLOVIR [Suspect]
     Indication: HERPES ZOSTER
     Dosage: 800MG PER DAY
     Route: 048
     Dates: start: 20060210, end: 20060215
  2. LISINOPRIL [Concomitant]
     Dosage: 20MG PER DAY
     Route: 048
  3. DOXAZOSIN [Concomitant]
     Dosage: 8 PER DAY
     Route: 048
  4. AMILORIDE HYDROCHLORIDE [Concomitant]
     Dosage: 5 PER DAY
     Route: 048
  5. ADALAT CC [Concomitant]
     Route: 048
  6. MOXONIDINE [Concomitant]
     Dosage: 200MCG PER DAY
     Route: 048
  7. ATENOLOL [Concomitant]
     Dosage: 50MG PER DAY
     Route: 048
  8. SILDENAFIL CITRATE [Concomitant]
     Route: 048
  9. GLICLAZIDE [Concomitant]
     Dosage: 80 PER DAY
     Route: 048

REACTIONS (2)
  - BACK PAIN [None]
  - RENAL PAIN [None]
